FAERS Safety Report 17726614 (Version 2)
Quarter: 2020Q2

REPORT INFORMATION
  Report Type: Spontaneous
  Country: US (occurrence: US)
  Receive Date: 20200430
  Receipt Date: 20200527
  Transmission Date: 20200714
  Serious: No
  Sender: FDA-Public Use
  Company Number: US-LUPIN PHARMACEUTICALS INC.-2020-01785

PATIENT
  Age: 49 Year
  Sex: Male
  Weight: 145.12 kg

DRUGS (2)
  1. CLOBETASOL PROPIONATE OINTMENT USP, 0.05% [Suspect]
     Active Substance: CLOBETASOL PROPIONATE
     Dosage: UNK UNK, QD (BAD BATCH)
     Route: 061
     Dates: start: 20200406
  2. CLOBETASOL PROPIONATE OINTMENT USP, 0.05% [Suspect]
     Active Substance: CLOBETASOL PROPIONATE
     Indication: ECZEMA
     Dosage: UNK UNK, QD
     Route: 061
     Dates: start: 201910, end: 201910

REACTIONS (3)
  - Disease recurrence [Unknown]
  - Product quality issue [Unknown]
  - Product container issue [Unknown]

NARRATIVE: CASE EVENT DATE: 201910
